FAERS Safety Report 21361787 (Version 1)
Quarter: 2022Q3

REPORT INFORMATION
  Report Type: Spontaneous
  Country: JP (occurrence: None)
  Receive Date: 20220922
  Receipt Date: 20220922
  Transmission Date: 20221027
  Serious: Yes (Other)
  Sender: FDA-Public Use
  Company Number: 2022A319754

PATIENT
  Age: 62 Year
  Sex: Female

DRUGS (2)
  1. FASENRA [Suspect]
     Active Substance: BENRALIZUMAB
     Indication: Asthma
     Route: 058
  2. ADRENAL [Concomitant]
     Active Substance: EPINEPHRINE
     Indication: Asthma
     Dosage: DOSE UNKNOWN
     Route: 048

REACTIONS (1)
  - Hepatitis acute [Unknown]
